FAERS Safety Report 5314689-6 (Version None)
Quarter: 2007Q2

REPORT INFORMATION
  Report Type: 
  Country: None (occurrence: None)
  Receive Date: 20070502
  Receipt Date: 20070424
  Transmission Date: 20071010
  Serious: Yes (Hospitalization)
  Sender: FDA-Public Use
  Company Number: AU-GLAXOSMITHKLINE-B0467699A

PATIENT
  Age: 66 Year
  Sex: Male

DRUGS (4)
  1. CARTIA XT [Suspect]
     Dosage: 1TAB PER DAY
     Route: 048
     Dates: start: 20070301, end: 20070414
  2. NOTEN [Concomitant]
  3. TRITACE [Concomitant]
  4. LIPITOR [Concomitant]

REACTIONS (2)
  - HEART RATE IRREGULAR [None]
  - PALPITATIONS [None]
